FAERS Safety Report 7684968-6 (Version None)
Quarter: 2011Q3

REPORT INFORMATION
  Report Type: 
  Country: None (occurrence: None)
  Receive Date: 20110816
  Receipt Date: 20110812
  Transmission Date: 20111222
  Serious: No
  Sender: FDA-Public Use
  Company Number: US-BAYER-201019864NA

PATIENT
  Sex: Female

DRUGS (2)
  1. YASMIN [Suspect]
  2. LEVAQUIN [Concomitant]
     Indication: CYSTITIS

REACTIONS (1)
  - CYSTITIS [None]
